FAERS Safety Report 4746163-X (Version None)
Quarter: 2005Q3

REPORT INFORMATION
  Report Type: 
  Country: None (occurrence: None)
  Receive Date: 20050816
  Receipt Date: 20050805
  Transmission Date: 20060218
  Serious: Yes (Hospitalization, Other)
  Sender: FDA-Public Use
  Company Number: KII-2005-0017891

PATIENT
  Age: 48 Year
  Sex: Female

DRUGS (4)
  1. OXYCONTIN [Suspect]
     Indication: PAIN
     Dosage: ORAL
     Route: 048
  2. HYDROMORPHONE HCL [Suspect]
     Indication: PAIN
     Dosage: ORAL
     Route: 048
  3. BENZODIAZEPINE DERIVATIVES ( ) [Suspect]
  4. TRICYCLIC ANTIDEPRESSANTS ( ) [Suspect]

REACTIONS (11)
  - BLOOD POTASSIUM DECREASED [None]
  - COMA [None]
  - DRUG SCREEN POSITIVE [None]
  - DRUG WITHDRAWAL SYNDROME [None]
  - LETHARGY [None]
  - MEDICATION ERROR [None]
  - SINUS TACHYCARDIA [None]
  - SOMNOLENCE [None]
  - TACHYPNOEA [None]
  - TORSADE DE POINTES [None]
  - WHITE BLOOD CELL COUNT INCREASED [None]
